FAERS Safety Report 7982499-7 (Version None)
Quarter: 2011Q4

REPORT INFORMATION
  Report Type: 
  Country: None (occurrence: None)
  Receive Date: 20111215
  Receipt Date: 20111206
  Transmission Date: 20120403
  Serious: Yes (Hospitalization)
  Sender: FDA-Public Use
  Company Number: AU-ROCHE-1016947

PATIENT
  Sex: Male
  Weight: 89 kg

DRUGS (12)
  1. CLONAZEPAM [Concomitant]
     Route: 048
     Dates: start: 20110301
  2. RAMIPRIL [Concomitant]
     Route: 048
     Dates: start: 20020101, end: 20111122
  3. METOCLOPRAMIDE [Concomitant]
     Indication: PROPHYLAXIS
     Route: 048
     Dates: start: 20110817
  4. LISINOPRIL [Concomitant]
     Route: 048
     Dates: start: 20111122, end: 20111123
  5. PROCHLORPERAZINE [Concomitant]
     Indication: PROPHYLAXIS
     Route: 048
     Dates: start: 20110801
  6. IBUPROFEN [Concomitant]
     Route: 048
  7. DOCUSATE [Concomitant]
     Route: 048
  8. AVASTIN [Suspect]
     Indication: GLIOBLASTOMA
     Dates: start: 20111116
  9. LISINOPRIL [Concomitant]
     Dates: start: 20111124, end: 20111129
  10. CARBOPLATIN [Suspect]
     Indication: GLIOBLASTOMA
     Dates: start: 20111116
  11. RANITIDINE [Concomitant]
     Route: 048
     Dates: start: 20110801
  12. LISINOPRIL [Concomitant]
     Dates: start: 20111129

REACTIONS (2)
  - METASTASES TO MENINGES [None]
  - HYPERTENSION [None]
